FAERS Safety Report 13862902 (Version 11)
Quarter: 2018Q2

REPORT INFORMATION
  Report Type: Spontaneous
  Country: CA (occurrence: CA)
  Receive Date: 20170814
  Receipt Date: 20180516
  Transmission Date: 20180711
  Serious: Yes (Death, Hospitalization, Other)
  Sender: FDA-Public Use
  Company Number: CA-ROCHE-1977578

PATIENT
  Age: 84 Year
  Sex: Male

DRUGS (7)
  1. XOLAIR [Suspect]
     Active Substance: OMALIZUMAB
     Route: 058
     Dates: start: 20171017
  2. XOLAIR [Suspect]
     Active Substance: OMALIZUMAB
     Route: 058
     Dates: start: 20171212
  3. XOLAIR [Suspect]
     Active Substance: OMALIZUMAB
     Route: 058
     Dates: start: 20170530
  4. XOLAIR [Suspect]
     Active Substance: OMALIZUMAB
     Route: 058
     Dates: start: 20180427, end: 20180427
  5. XOLAIR [Suspect]
     Active Substance: OMALIZUMAB
     Indication: ASTHMA
     Route: 058
     Dates: start: 20130211
  6. XOLAIR [Suspect]
     Active Substance: OMALIZUMAB
     Route: 058
     Dates: start: 20170725
  7. XOLAIR [Suspect]
     Active Substance: OMALIZUMAB
     Route: 058
     Dates: start: 20180413

REACTIONS (36)
  - Aptyalism [Unknown]
  - Pyrexia [Unknown]
  - Immunosuppression [Unknown]
  - Neutrophil count increased [Unknown]
  - Dry mouth [Unknown]
  - Joint effusion [Unknown]
  - Hyperventilation [Unknown]
  - Lower respiratory tract infection bacterial [Unknown]
  - Rales [Unknown]
  - Staphylococcus test positive [Unknown]
  - Arthritis bacterial [Unknown]
  - Abscess [Unknown]
  - Death [Fatal]
  - Localised infection [Unknown]
  - Mucosal dryness [Unknown]
  - Respiratory tract infection [Unknown]
  - Tongue coated [Unknown]
  - Chondrocalcinosis [Unknown]
  - Dyspnoea [Unknown]
  - Asthenia [Unknown]
  - Fluid imbalance [Unknown]
  - Oedema [Unknown]
  - Blood urea increased [Unknown]
  - Hernia [Unknown]
  - Lung disorder [Unknown]
  - Arthritis [Unknown]
  - Haemoglobin increased [Unknown]
  - White blood cell count increased [Unknown]
  - Hypokinesia [Unknown]
  - Oral discharge [Unknown]
  - Confusional state [Unknown]
  - Oxygen consumption increased [Unknown]
  - Tenderness [Unknown]
  - Peripheral swelling [Unknown]
  - Nervousness [Unknown]
  - Wheezing [Unknown]

NARRATIVE: CASE EVENT DATE: 20170616
